FAERS Safety Report 6184013-8 (Version None)
Quarter: 2009Q2

REPORT INFORMATION
  Report Type: 
  Country: None (occurrence: None)
  Receive Date: 20090506
  Receipt Date: 20090506
  Transmission Date: 20091009
  Serious: No
  Sender: FDA-Public Use
  Company Number: None

PATIENT
  Age: 48 Year
  Sex: Female
  Weight: 61.2356 kg

DRUGS (1)
  1. CYMBALTA [Suspect]
     Indication: FIBROMYALGIA
     Dosage: 60 MG ONCE DAILY PO
     Route: 048
     Dates: start: 20070301, end: 20090427

REACTIONS (17)
  - AGITATION [None]
  - BALANCE DISORDER [None]
  - CONFUSIONAL STATE [None]
  - CRYING [None]
  - DIZZINESS [None]
  - FEAR [None]
  - FEELING ABNORMAL [None]
  - HALLUCINATION, AUDITORY [None]
  - HEADACHE [None]
  - HYPERACUSIS [None]
  - IMPAIRED DRIVING ABILITY [None]
  - IMPAIRED WORK ABILITY [None]
  - MEMORY IMPAIRMENT [None]
  - MENTAL DISORDER [None]
  - MOOD SWINGS [None]
  - NAUSEA [None]
  - SUICIDAL IDEATION [None]
